FAERS Safety Report 15230270 (Version 1)
Quarter: 2018Q3

REPORT INFORMATION
  Report Type: Spontaneous
  Country: GB (occurrence: GB)
  Receive Date: 20180802
  Receipt Date: 20180802
  Transmission Date: 20181010
  Serious: Yes (Other)
  Sender: FDA-Public Use
  Company Number: GB-SUN PHARMACEUTICAL INDUSTRIES LTD-2018R1-180152

PATIENT
  Age: 53 Year
  Sex: Male
  Weight: 76.2 kg

DRUGS (1)
  1. CIPROFLOXACIN. [Suspect]
     Active Substance: CIPROFLOXACIN
     Indication: PROSTATIC SPECIFIC ANTIGEN INCREASED
     Dosage: 1000 MG, DAILY
     Route: 048
     Dates: start: 20180622, end: 20180626

REACTIONS (6)
  - Skin burning sensation [Not Recovered/Not Resolved]
  - Arthralgia [Not Recovered/Not Resolved]
  - Tinnitus [Not Recovered/Not Resolved]
  - Tendon pain [Not Recovered/Not Resolved]
  - Paraesthesia [Unknown]
  - Neuralgia [Not Recovered/Not Resolved]

NARRATIVE: CASE EVENT DATE: 20180624
